FAERS Safety Report 16907087 (Version 1)
Quarter: 2019Q4

REPORT INFORMATION
  Report Type: Spontaneous
  Country: US (occurrence: US)
  Receive Date: 20191011
  Receipt Date: 20191011
  Transmission Date: 20200122
  Serious: No
  Sender: FDA-Public Use
  Company Number: US-TEVA-2019-US-1121590

PATIENT
  Age: 84 Year
  Sex: Female
  Weight: 48.07 kg

DRUGS (4)
  1. VITAMIN D [Concomitant]
     Active Substance: VITAMIN D NOS
     Dates: start: 2018
  2. BIOTIN [Concomitant]
     Active Substance: BIOTIN
  3. MUCUS D [Suspect]
     Active Substance: GUAIFENESIN\PSEUDOEPHEDRINE HYDROCHLORIDE
     Indication: SINUS CONGESTION
     Dosage: 1 TABLET, SINGLE, PSEUDOEPHEDRINE HYDROCHLORIDE 60 MG/GUAIFENESIN 600 MG, PROLONGED-RELEASE
     Route: 048
     Dates: start: 20191003, end: 20191003
  4. MUCUS D [Suspect]
     Active Substance: GUAIFENESIN\PSEUDOEPHEDRINE HYDROCHLORIDE
     Indication: INCREASED UPPER AIRWAY SECRETION

REACTIONS (4)
  - Dry eye [Not Recovered/Not Resolved]
  - Lacrimation increased [Recovered/Resolved]
  - Dizziness [Recovered/Resolved]
  - Underdose [Unknown]

NARRATIVE: CASE EVENT DATE: 20191003
